FAERS Safety Report 6445675-0 (Version None)
Quarter: 2009Q4

REPORT INFORMATION
  Report Type: 
  Country: None (occurrence: None)
  Receive Date: 20091118
  Receipt Date: 20091118
  Transmission Date: 20100525
  Serious: Yes (Other)
  Sender: FDA-Public Use
  Company Number: None

PATIENT
  Age: 55 Year
  Sex: Female
  Weight: 77.1115 kg

DRUGS (4)
  1. CHANTIX [Suspect]
     Indication: SMOKING CESSATION THERAPY
     Dosage: 1 MG TWICE DAILY, PO
     Route: 048
     Dates: start: 20090902, end: 20091103
  2. PAROXETINE HCL [Concomitant]
  3. ULTRAM [Concomitant]
  4. TRAZODONE HCL [Concomitant]

REACTIONS (3)
  - AMNESIA [None]
  - INSOMNIA [None]
  - LOSS OF CONSCIOUSNESS [None]
